FAERS Safety Report 16284588 (Version 1)
Quarter: 2019Q2

REPORT INFORMATION
  Report Type: Spontaneous
  Country: HR (occurrence: HR)
  Receive Date: 20190508
  Receipt Date: 20190508
  Transmission Date: 20190711
  Serious: Yes (Other)
  Sender: FDA-Public Use
  Company Number: HR-LUPIN PHARMACEUTICALS INC.-2019-02391

PATIENT
  Age: 28 Year
  Sex: Male

DRUGS (1)
  1. TESTOSTERONE. [Suspect]
     Active Substance: TESTOSTERONE
     Indication: ANDROGEN DEFICIENCY
     Dosage: UNK (INJECTION)
     Route: 030

REACTIONS (3)
  - Infertility male [Not Recovered/Not Resolved]
  - Azoospermia [Not Recovered/Not Resolved]
  - Secondary hypogonadism [Not Recovered/Not Resolved]
